FAERS Safety Report 11340103 (Version 1)
Quarter: 2015Q3

REPORT INFORMATION
  Report Type: Spontaneous
  Country: US (occurrence: US)
  Receive Date: 20150805
  Receipt Date: 20150805
  Transmission Date: 20151125
  Serious: Yes (Other)
  Sender: FDA-Public Use
  Company Number: US-BAYER-2015-349367

PATIENT
  Age: 27 Year
  Sex: Female
  Weight: 68.93 kg

DRUGS (2)
  1. MIRENA [Suspect]
     Active Substance: LEVONORGESTREL
     Dosage: 20 ?G/D, CONT
     Route: 015
  2. DEPO-PROVERA [Concomitant]
     Active Substance: MEDROXYPROGESTERONE ACETATE

REACTIONS (4)
  - Pregnancy with contraceptive device [Unknown]
  - Device ineffective [Unknown]
  - Abdominal pain lower [Unknown]
  - Device dislocation [Unknown]

NARRATIVE: CASE EVENT DATE: 201504
